FAERS Safety Report 21169798 (Version 2)
Quarter: 2022Q4

REPORT INFORMATION
  Report Type: Spontaneous
  Country: GB (occurrence: GB)
  Receive Date: 20220804
  Receipt Date: 20221222
  Transmission Date: 20230113
  Serious: Yes (Hospitalization, Other)
  Sender: FDA-Public Use
  Company Number: GB-CELLTRION INC.-2022GB010821

PATIENT
  Age: 49 Year
  Sex: Male

DRUGS (65)
  1. DOXORUBICIN [Suspect]
     Active Substance: DOXORUBICIN
     Indication: B-cell lymphoma
     Dosage: DOSE:1, CYCLE/ RCHOP CHEMO - DOSE AND EXACT ROUTE NOT KNOWN CYCLIC (6 CYCLE, RCHOP CHEMO - DOSE, GAS
     Route: 065
     Dates: end: 20220512
  2. DOXORUBICIN [Suspect]
     Active Substance: DOXORUBICIN
     Dosage: RCHOP CHEMO (DOSAGE FORM: SOLUTION FOR INJECTION)
     Route: 065
     Dates: end: 20220512
  3. DOXORUBICIN [Suspect]
     Active Substance: DOXORUBICIN
     Dosage: UNK, CYCLIC (6 CYCLE, RCHOP CHEMO - DOSE) (DOSAGE FORM: SOLUTION FOR INJECTION)
     Route: 065
     Dates: end: 20220512
  4. DOXORUBICIN [Suspect]
     Active Substance: DOXORUBICIN
     Dosage: UNK, (DOSAGE FORM: SOLUTION FOR INJECTION)
     Route: 065
     Dates: end: 20220512
  5. DOXORUBICIN [Suspect]
     Active Substance: DOXORUBICIN
     Dosage: RCHOP CHEMO - DOSE AND EXACT ROUTE NOT KNOWN (DOSAGE FORM: SOLUTION FOR INJECTION)
     Route: 065
     Dates: end: 20220512
  6. DOXORUBICIN [Suspect]
     Active Substance: DOXORUBICIN
     Dosage: RCHOP CHEMO, (DOSAGE FORM: SOLUTION FOR INJECTION)
     Route: 065
     Dates: end: 20220512
  7. DOXORUBICIN [Suspect]
     Active Substance: DOXORUBICIN
     Dosage: UNK UNK, CYCLIC, (DOSAGE FORM: SOLUTION FOR INJECTION)
     Route: 065
     Dates: end: 20220512
  8. DOXORUBICIN [Suspect]
     Active Substance: DOXORUBICIN
     Dosage: UNK, CYCLIC (6 CYCLE RCHOP CHEMO- DOSE AND ROUTE UNKNOWN 12/MAY/2022.) (DOSAGE FORM: SOLUTION FOR IN
     Route: 065
     Dates: end: 20220512
  9. DOXORUBICIN [Suspect]
     Active Substance: DOXORUBICIN
     Dosage: UNK, CYCLIC (6 CYCLE, RCHOP CHEMO - DOSE), RCHOP CHEMO - DOSE AND EXACT ROUTE NOT KNOWN (DOSAGE FORM
     Route: 065
     Dates: end: 20220512
  10. DOXORUBICIN [Suspect]
     Active Substance: DOXORUBICIN
     Dosage: UNK, CYCLIC (6 CYCLE, RCHOP CHEMO - DOSE) DOSAGE FORM: INJECTION
     Route: 065
  11. DOXORUBICIN [Suspect]
     Active Substance: DOXORUBICIN
     Dosage: UNK UNK, CYCLIC (6 CYCLE RCHOP CHEMO- DOSE AND ROUTE UNKNOWN 12/MAY/2022. (DOSAGE FORM: SOLUTION FOR
     Route: 065
     Dates: end: 20220512
  12. DOXORUBICIN [Suspect]
     Active Substance: DOXORUBICIN
     Dosage: MOST RECENT DOSE ON 12/MAY/2022 (DOSAGE FORM: SOLUTION FOR INJECTION)
     Route: 065
     Dates: end: 20220512
  13. DOXORUBICIN [Suspect]
     Active Substance: DOXORUBICIN
     Dosage: UNK, CYCLIC (6 CYCLE, RCHOP CHEMO - DOSE) DOSAGE FORM: INJECTION
     Route: 065
     Dates: end: 20220512
  14. DOXORUBICIN [Suspect]
     Active Substance: DOXORUBICIN
     Dosage: UNK, CYCLIC (6 CYCLE, RCHOP CHEMO - DOSE) (DOSAGE FORM: SOLUTION FOR INJECTION)
     Route: 065
     Dates: end: 20220512
  15. DOXORUBICIN [Suspect]
     Active Substance: DOXORUBICIN
     Dosage: UNK (RCHOP CHEMO - DOSE AND EXACT ROUTE NOT KNOWN) (DOSAGE FORM: SOLUTION FOR INJECTION)
     Route: 065
     Dates: end: 20220512
  16. CYCLOPHOSPHAMIDE [Suspect]
     Active Substance: CYCLOPHOSPHAMIDE
     Indication: B-cell lymphoma
     Dosage: RCHOP CHEMO, MOST RECENT DOSE ON 12/MAY/2022
     Route: 065
  17. CYCLOPHOSPHAMIDE [Suspect]
     Active Substance: CYCLOPHOSPHAMIDE
     Dosage: UNK (RCHOP CHEMO - DOSE AND EXACT ROUTE NOT KNOWN)
     Route: 065
     Dates: end: 20220512
  18. CYCLOPHOSPHAMIDE [Suspect]
     Active Substance: CYCLOPHOSPHAMIDE
     Dosage: CYCLIC (RCHOP CHEMO - DOSE AND EXACT ROUTE NOT KNOWN CYCLIC (6 CYCLE, RCHOP CHEMO - DOSE)
     Route: 065
     Dates: end: 20220512
  19. CYCLOPHOSPHAMIDE [Suspect]
     Active Substance: CYCLOPHOSPHAMIDE
     Dosage: DOSE 1, CYCLE/RCHOP CHEMO - DOSE AND EXACT ROUTE NOT KNOWN CYCLIC (6 CYCLE, RCHOP CHEMO - DOSE)
     Route: 065
     Dates: end: 20220512
  20. CYCLOPHOSPHAMIDE [Suspect]
     Active Substance: CYCLOPHOSPHAMIDE
     Dosage: RCHOP CHEMO
     Route: 065
     Dates: end: 20220512
  21. CYCLOPHOSPHAMIDE [Suspect]
     Active Substance: CYCLOPHOSPHAMIDE
     Dosage: UNK, CYCLIC (6 CYCLE, RCHOP CHEMO - DOSE)
     Route: 065
     Dates: end: 20220512
  22. CYCLOPHOSPHAMIDE [Suspect]
     Active Substance: CYCLOPHOSPHAMIDE
     Dosage: UNK
     Route: 065
     Dates: end: 20220512
  23. CYCLOPHOSPHAMIDE [Suspect]
     Active Substance: CYCLOPHOSPHAMIDE
     Dosage: CYCLIC (RCHOP CHEMO - DOSE AND EXACT ROUTE NOT KNOWN, CYCLIC (6 CYCLE, RCHOP CHEMO - DOSE))
     Route: 065
     Dates: end: 20220512
  24. CYCLOPHOSPHAMIDE [Suspect]
     Active Substance: CYCLOPHOSPHAMIDE
     Dosage: UNK, CYCLIC (6 CYCLE, RCHOP CHEMO - DOSE)
     Route: 065
     Dates: end: 20220512
  25. CYCLOPHOSPHAMIDE [Suspect]
     Active Substance: CYCLOPHOSPHAMIDE
     Dosage: RCHOP CHEMO - DOSE AND EXACT ROUTE NOT KNOWN.
     Route: 065
     Dates: end: 20220512
  26. CYCLOPHOSPHAMIDE [Suspect]
     Active Substance: CYCLOPHOSPHAMIDE
     Dosage: UNK, CYCLIC (6 CYCLE, RCHOP CHEMO - DOSE
     Route: 065
     Dates: end: 20220512
  27. CYCLOPHOSPHAMIDE [Suspect]
     Active Substance: CYCLOPHOSPHAMIDE
     Dosage: RCHOP CHEMO
     Route: 065
     Dates: end: 20220512
  28. CYCLOPHOSPHAMIDE [Suspect]
     Active Substance: CYCLOPHOSPHAMIDE
     Dosage: UNK, CYCLIC (6 CYCLE, RCHOP CHEMO - DOSE
     Route: 065
     Dates: end: 20220512
  29. PREDNISOLONE [Suspect]
     Active Substance: PREDNISOLONE
     Indication: B-cell lymphoma
     Dosage: UNK, CYCLIC (6 CYCLE, RCHOP CHEMO - DOSE, GASTRO RESISTANT
     Route: 065
     Dates: end: 20220512
  30. PREDNISOLONE [Suspect]
     Active Substance: PREDNISOLONE
     Dosage: RCHOP CHEMO
     Route: 065
     Dates: end: 20220512
  31. PREDNISOLONE [Suspect]
     Active Substance: PREDNISOLONE
     Dosage: UNK (RCHOP CHEMO - DOSE AND EXACT ROUTE NOT KNOWN.)
     Route: 065
     Dates: end: 20220512
  32. PREDNISOLONE [Suspect]
     Active Substance: PREDNISOLONE
     Dosage: UNK, CYCLIC (6 CYCLE, RCHOP CHEMO - DOSE, GASTRO RESISTANT)
     Route: 065
     Dates: end: 20220512
  33. PREDNISOLONE [Suspect]
     Active Substance: PREDNISOLONE
     Dosage: RCHOP CHEMO - DOSE AND EXACT ROUTE NOT KNOWN.
     Route: 042
     Dates: end: 20220512
  34. PREDNISOLONE [Suspect]
     Active Substance: PREDNISOLONE
     Dosage: RCHOP CHEMO, MOST RECENT DOSE ON 12/MAY/2022
     Route: 065
     Dates: end: 20220512
  35. RITUXIMAB [Suspect]
     Active Substance: RITUXIMAB
     Indication: B-cell lymphoma
     Dosage: UNK (RCHOP CHEMO)
     Route: 065
     Dates: end: 20220512
  36. RITUXIMAB [Suspect]
     Active Substance: RITUXIMAB
     Dosage: UNK (CYCLIC (6 CYCLE, RCHOP CHEMO - DOSE)
     Route: 041
     Dates: end: 20220512
  37. RITUXIMAB [Suspect]
     Active Substance: RITUXIMAB
     Dosage: RCHOP CHEMO - DOSE AND EXACT ROUTE NOT KNOWN.
     Route: 065
     Dates: end: 20220512
  38. RITUXIMAB [Suspect]
     Active Substance: RITUXIMAB
     Dosage: UNK (RCHOP CHEMO - DOSE AND EXACT ROUTE NOT KNOWN.)
     Route: 065
     Dates: end: 20220512
  39. RITUXIMAB [Suspect]
     Active Substance: RITUXIMAB
     Dosage: UNK
     Route: 065
     Dates: end: 20220512
  40. RITUXIMAB [Suspect]
     Active Substance: RITUXIMAB
     Dosage: UNK
     Route: 065
     Dates: end: 20220512
  41. RITUXIMAB [Suspect]
     Active Substance: RITUXIMAB
     Dosage: DOSE:1, CYCLE /RCHOP CHEMO - DOSE AND EXACT ROUTE NOT KNOWN. UNK, CYCLIC (6 CYCLE, RCHOP CHEMO - DOS
     Route: 042
     Dates: end: 20220512
  42. RITUXIMAB [Suspect]
     Active Substance: RITUXIMAB
     Dosage: RCHOP CHEMO - DOSE AND EXACT ROUTE NOT KNOWN.
     Route: 042
     Dates: end: 20220512
  43. RITUXIMAB [Suspect]
     Active Substance: RITUXIMAB
     Dosage: MOST RECENT DOSE ON 12/MAY/2022
     Route: 065
     Dates: end: 20220512
  44. RITUXIMAB [Suspect]
     Active Substance: RITUXIMAB
     Dosage: RITUXIMAB
     Route: 065
     Dates: end: 20220512
  45. RITUXIMAB [Suspect]
     Active Substance: RITUXIMAB
     Dosage: UNK, CYCLIC (6 CYCLE, RCHOP CHEMO - DOSE)
     Route: 065
     Dates: end: 20220512
  46. RITUXIMAB [Suspect]
     Active Substance: RITUXIMAB
     Dosage: CYCLIC (RCHOP CHEMO - DOSE AND EXACT ROUTE NOT KNOWN.UNK, CYCLIC (6 CYCLE, RCHOP CHEMO - DOSE)
     Route: 042
     Dates: end: 20220512
  47. VINCRISTINE [Suspect]
     Active Substance: VINCRISTINE
     Indication: B-cell lymphoma
     Dosage: RCHOP CHEMO
     Route: 065
     Dates: end: 20220512
  48. VINCRISTINE [Suspect]
     Active Substance: VINCRISTINE
     Dosage: CYCLIC (6 CYCLE, RCHOP CHEMO - DOSE, GASTRO RESISTANT)
     Route: 065
     Dates: end: 20220512
  49. VINCRISTINE [Suspect]
     Active Substance: VINCRISTINE
     Dosage: UNK, CYCLIC (6 CYCLE, RCHOP CHEMO - DOSE, GASTRO RESISTANT)
     Route: 065
     Dates: end: 20220512
  50. VINCRISTINE [Suspect]
     Active Substance: VINCRISTINE
     Dosage: (RCHOP CHEMO - DOSE AND EXACT ROUTE NOT KNOWN.)
     Route: 065
     Dates: end: 20220512
  51. VINCRISTINE [Suspect]
     Active Substance: VINCRISTINE
     Dosage: RCHOP CHEMO - DOSE AND EXACT ROUTE NOT KNOWN.CYCLIC (6 CYCLE, RCHOP CHEMO - DOSE, GASTRO RESISTANT)
     Route: 065
     Dates: end: 20220512
  52. VINCRISTINE [Suspect]
     Active Substance: VINCRISTINE
     Dosage: RCHOP CHEMO
     Route: 065
     Dates: end: 20220512
  53. VINCRISTINE [Suspect]
     Active Substance: VINCRISTINE
     Dosage: UNK (RCHOP CHEMO - DOSE AND EXACT ROUTE NOT KNOWN. CYCLIC (6 CYCLE, RCHOP CHEMO - DOSE, GASTRO RESIS
     Route: 065
     Dates: end: 20220512
  54. VINCRISTINE [Suspect]
     Active Substance: VINCRISTINE
     Dosage: DOSE:1, CYCLE/ RCHOP CHEMO - DOSE AND EXACT ROUTE NOT KNOWN CYCLIC (6 CYCLE, RCHOP CHEMO - DOSE, GAS
     Route: 065
     Dates: end: 20220512
  55. VINCRISTINE [Suspect]
     Active Substance: VINCRISTINE
     Dosage: RCHOP CHEMO, MOST RECENT DOSE ON 12/MAY/2022
     Route: 065
     Dates: end: 20220512
  56. VINCRISTINE [Suspect]
     Active Substance: VINCRISTINE
     Dosage: UNK, CYCLIC (6 CYCLE, RCHOP CHEMO - DOSE, GASTRO RESISTANT)
     Route: 065
     Dates: end: 20220512
  57. VINCRISTINE [Suspect]
     Active Substance: VINCRISTINE
     Dosage: RCHOP CHEMO - DOSE AND EXACT ROUTE NOT KNOWN.
     Route: 065
     Dates: end: 20220512
  58. VINCRISTINE [Suspect]
     Active Substance: VINCRISTINE
     Dosage: UNK, CYCLIC (6 CYCLE, RCHOP CHEMO - DOSE, GASTRO RESISTANT
     Route: 065
     Dates: end: 20220512
  59. VINCRISTINE [Suspect]
     Active Substance: VINCRISTINE
     Dosage: UNK, CYCLIC (6 CYCLE, RCHOP CHEMO - DOSE, GASTRO RESISTANT
     Route: 065
     Dates: end: 20220512
  60. PREDNISOLONE [Suspect]
     Active Substance: PREDNISOLONE
     Indication: B-cell lymphoma
     Dosage: RCHOP CHEMO - DOSE AND EXACT ROUTE NOT KNOWN (DOSAGE FORM: GASTRO RESISTANT)
     Route: 065
     Dates: end: 20220512
  61. PREDNISOLONE [Suspect]
     Active Substance: PREDNISOLONE
     Dosage: UNK, CYCLIC (6 CYCLE, RCHOP CHEMO - DOSE, GASTRO RESISTANT)
     Route: 065
     Dates: end: 20220512
  62. PREDNISOLONE [Suspect]
     Active Substance: PREDNISOLONE
     Dosage: RCHOP CHEMO - DOSE AND EXACT ROUTE NOT KNOWN, CYCLIC (6 CYCLE, RCHOP CHEMO - DOSE, GASTRO RESISTANT)
     Route: 065
     Dates: end: 20220512
  63. PREDNISOLONE [Suspect]
     Active Substance: PREDNISOLONE
     Dosage: RCHOP CHEMO - DOSE AND EXACT ROUTE NOT KNOWN, CYCLIC (6 CYCLE, RCHOP CHEMO - DOSE, GASTRO RESISTANT)
     Route: 065
     Dates: end: 20220512
  64. PREDNISOLONE [Suspect]
     Active Substance: PREDNISOLONE
     Dosage: UNK, CYCLIC (6 CYCLE, RCHOP CHEMO - DOSE, GASTRO RESISTANT)
     Route: 065
     Dates: end: 20220512
  65. PREDNISOLONE [Suspect]
     Active Substance: PREDNISOLONE
     Dosage: DOSE:1, CYCLE/ RCHOP CHEMO - DOSE AND EXACT ROUTE NOT KNOWN CYCLIC (6 CYCLE, RCHOP CHEMO - DOSE, GAS
     Route: 065
     Dates: end: 20220512

REACTIONS (10)
  - Cerebellar syndrome [Unknown]
  - Balance disorder [Unknown]
  - Abnormal behaviour [Unknown]
  - Off label use [Unknown]
  - Condition aggravated [Unknown]
  - Dysarthria [Unknown]
  - Disease progression [Unknown]
  - Lethargy [Unknown]
  - Confusional state [Unknown]
  - Back pain [Unknown]

NARRATIVE: CASE EVENT DATE: 20220514
